FAERS Safety Report 4796761-2 (Version None)
Quarter: 2005Q4

REPORT INFORMATION
  Report Type: 
  Country: None (occurrence: None)
  Receive Date: 20051007
  Receipt Date: 20050927
  Transmission Date: 20060501
  Serious: Yes (Other)
  Sender: FDA-Public Use
  Company Number: 2005136254

PATIENT
  Age: 70 Year
  Sex: Female
  Weight: 68 kg

DRUGS (5)
  1. FRAGMIN [Suspect]
     Indication: KNEE ARTHROPLASTY
     Dosage: 5000 I.U. (5000 I.U., 1 IN 1 D), SUBCUTANEOUS
     Route: 058
     Dates: start: 20050904
  2. EVISTA [Concomitant]
  3. DICLOMELAN (DICLOFENAC SODIUM) [Concomitant]
  4. NEXIUM [Concomitant]
  5. VENOSIN - SLOW RELEASE (HORSE CHESTNUT EXTRACT) [Concomitant]

REACTIONS (1)
  - DEEP VEIN THROMBOSIS [None]
